FAERS Safety Report 8500652-0 (Version None)
Quarter: 2012Q2

REPORT INFORMATION
  Report Type: 
  Country: None (occurrence: None)
  Receive Date: 20120405
  Receipt Date: 20100118
  Transmission Date: 20120825
  Serious: Yes (Hospitalization, Other)
  Sender: FDA-Public Use
  Company Number: PHEH2009US06543

PATIENT
  Age: 70 Year
  Sex: Female
  Weight: 126.5 kg

DRUGS (3)
  1. METOPROLOL TARTRATE [Concomitant]
  2. RECLAST [Suspect]
     Indication: OSTEOPENIA
     Dosage: 5 MG, INTRAVENOUS
     Route: 042
     Dates: start: 20090501
  3. DIOVAN [Concomitant]

REACTIONS (3)
  - HEADACHE [None]
  - HYPERTENSION [None]
  - DIZZINESS [None]
